FAERS Safety Report 11613742 (Version 1)
Quarter: 2015Q4

REPORT INFORMATION
  Report Type: Spontaneous
  Country: FR (occurrence: FR)
  Receive Date: 20151008
  Receipt Date: 20151008
  Transmission Date: 20160304
  Serious: Yes (Life-Threatening, Hospitalization, Other)
  Sender: FDA-Public Use
  Company Number: FR-ASTRAZENECA-2015SE96052

PATIENT
  Age: 13239 Day

DRUGS (11)
  1. AERIUS [Concomitant]
     Active Substance: DESLORATADINE
     Route: 046
  2. VFEND [Interacting]
     Active Substance: VORICONAZOLE
     Indication: BRONCHOPULMONARY ASPERGILLOSIS
     Route: 048
     Dates: start: 20141223, end: 20150807
  3. TARDYFERON [Concomitant]
     Active Substance: FERROUS SULFATE\FOLIC ACID
     Route: 048
  4. VENTOLINE [Concomitant]
     Active Substance: ALBUTEROL
     Indication: ASTHMA
     Route: 055
  5. PULMICORT TURBUHALER [Suspect]
     Active Substance: BUDESONIDE
     Indication: ASTHMA
     Route: 055
  6. SINGULAIR [Concomitant]
     Active Substance: MONTELUKAST SODIUM
     Indication: ASTHMA
     Route: 048
  7. SERETIDE [Interacting]
     Active Substance: FLUTICASONE FUROATE\SALMETEROL XINAFOATE
     Indication: ASTHMA
     Dosage: 500/50 MICROGRAMS PER DOSE, 2 PUFFS PER DAY
     Route: 055
  8. BIPROFENID [Concomitant]
     Active Substance: KETOPROFEN
     Route: 048
  9. IMMUNOGLOBULINS [Concomitant]
     Active Substance: HUMAN IMMUNOGLOBULIN G
     Indication: IMMUNODEFICIENCY
  10. OGAST [Concomitant]
     Active Substance: LANSOPRAZOLE
     Route: 048
     Dates: start: 201406
  11. AVAMYS [Interacting]
     Active Substance: FLUTICASONE FUROATE
     Indication: ASTHMA
     Route: 055

REACTIONS (4)
  - Bronchopulmonary aspergillosis [Unknown]
  - Drug interaction [Unknown]
  - Back pain [Unknown]
  - Adrenal insufficiency [Recovered/Resolved]

NARRATIVE: CASE EVENT DATE: 201412
